FAERS Safety Report 4796167-6 (Version None)
Quarter: 2005Q4

REPORT INFORMATION
  Report Type: 
  Country: None (occurrence: None)
  Receive Date: 20051007
  Receipt Date: 20050921
  Transmission Date: 20060501
  Serious: Yes (Hospitalization, Other)
  Sender: FDA-Public Use
  Company Number: 2005BI017785

PATIENT
  Sex: Female

DRUGS (1)
  1. AVONEX [Suspect]
     Indication: MULTIPLE SCLEROSIS
     Dosage: 30 UG; QW; IM
     Route: 030
     Dates: start: 20010501

REACTIONS (7)
  - ARRHYTHMIA [None]
  - ASTHMA [None]
  - CARDIAC FAILURE [None]
  - CHRONIC OBSTRUCTIVE PULMONARY DISEASE [None]
  - DIABETES MELLITUS [None]
  - HYPERTENSION [None]
  - PULMONARY OEDEMA [None]
